FAERS Safety Report 21165516 (Version 14)
Quarter: 2023Q1

REPORT INFORMATION
  Report Type: Report from Study
  Country: CN (occurrence: CN)
  Receive Date: 20220803
  Receipt Date: 20230323
  Transmission Date: 20230417
  Serious: Yes (Hospitalization)
  Sender: FDA-Public Use
  Company Number: CN-G1 THERAPEUTICS-2022G1CN0000183

PATIENT

DRUGS (39)
  1. TRILACICLIB [Suspect]
     Active Substance: TRILACICLIB
     Indication: Breast cancer metastatic
     Dosage: 396 MG; 240 MG/M2 ADMINISTERED ON DAY 1 AND 8 OF A 21-DAY CYCLE
     Route: 041
     Dates: start: 20220630, end: 20220630
  2. TRILACICLIB [Suspect]
     Active Substance: TRILACICLIB
     Dosage: 386.4 MG; 240 MG/M2 ADMINISTERED ON DAY 1 AND 8 OF A 21-DAY CYCLE
     Route: 041
     Dates: start: 20220707, end: 20220707
  3. TRILACICLIB [Suspect]
     Active Substance: TRILACICLIB
     Dosage: 398.4 MG; 240 MG/M2 ADMINISTERED ON DAY 1 AND 8 OF A 21-DAY CYCLE
     Route: 041
     Dates: start: 20220721, end: 20220816
  4. TRILACICLIB [Suspect]
     Active Substance: TRILACICLIB
     Dosage: 405.6 MG; 240 MG/M2 ADMINISTERED ON DAY 1 AND 8 OF A 21-DAY CYCLE
     Route: 041
     Dates: start: 20220830, end: 20220830
  5. TRILACICLIB [Suspect]
     Active Substance: TRILACICLIB
     Dosage: 400.8 MG; 240 MG/M2 ADMINISTERED ON DAY 1 AND 8 OF A 21-DAY CYCLE
     Route: 041
     Dates: start: 20220906, end: 20220906
  6. TRILACICLIB [Suspect]
     Active Substance: TRILACICLIB
     Dosage: 405.6 MG: 240 MG/M2 ADMINISTERED ON DAY 1 AND 8 OF A 21-DAY CYCLE
     Route: 041
     Dates: start: 20220928, end: 20220928
  7. TRILACICLIB [Suspect]
     Active Substance: TRILACICLIB
     Dosage: 403.2 MG: 240 MG/M2 ON DAY 1 AND 8
     Route: 041
     Dates: start: 20221019, end: 20221019
  8. CARBOPLATIN [Suspect]
     Active Substance: CARBOPLATIN
     Indication: Breast cancer metastatic
     Dosage: 203 MG; AUC2 ADMINISTERED ON DAY 1 AND 8 OF A 21-DAY CYCLE
     Route: 041
     Dates: start: 20220630, end: 20220630
  9. CARBOPLATIN [Suspect]
     Active Substance: CARBOPLATIN
     Dosage: 214 MG: AUC2 ADMINISTERED ON DAY 1 AND 8 OF A 21-DAY CYCLE
     Route: 041
     Dates: start: 20220707, end: 20220707
  10. CARBOPLATIN [Suspect]
     Active Substance: CARBOPLATIN
     Dosage: 217 MG: AUC2 ADMINISTERED ON DAY 1 AND 8 OF A 21-DAY CYCLE
     Route: 041
     Dates: start: 20220721, end: 20220721
  11. CARBOPLATIN [Suspect]
     Active Substance: CARBOPLATIN
     Dosage: 226 MG;  AUC2 ADMINISTERED ON DAY 1 AND 8 OF A 21-DAY CYCLE
     Route: 041
     Dates: start: 20220808, end: 20220808
  12. CARBOPLATIN [Suspect]
     Active Substance: CARBOPLATIN
     Dosage: 246 MG; AUC2 ADMINISTERED ON DAY 1 AND 8 OF A 21-DAY CYCLE
     Route: 041
     Dates: start: 20220816, end: 20220816
  13. CARBOPLATIN [Suspect]
     Active Substance: CARBOPLATIN
     Dosage: 235 MG; AUC2 ADMINISTERED ON DAY 1 AND 8 OF A 21-DAY CYCLE
     Route: 041
     Dates: start: 20220830, end: 20220830
  14. CARBOPLATIN [Suspect]
     Active Substance: CARBOPLATIN
     Dosage: 228 MG; AUC2 ADMINISTERED ON DAY 1 AND 8 OF A 21-DAY CYCLE
     Route: 041
     Dates: start: 20220906, end: 20220906
  15. CARBOPLATIN [Suspect]
     Active Substance: CARBOPLATIN
     Dosage: 211 MG: AUC2 ADMINISTERED ON DAY 1 AND 8 OF A 21-DAY CYCLE
     Route: 041
     Dates: start: 20220928, end: 20220928
  16. GEMCITABINE [Suspect]
     Active Substance: GEMCITABINE
     Indication: Breast cancer metastatic
     Dosage: 1650 MG: 1000 MG/M2 ADMINISTERED ON DAY 1 AND 8 OF A 21-DAY CYCLE
     Route: 041
     Dates: start: 20220630, end: 20220630
  17. GEMCITABINE [Suspect]
     Active Substance: GEMCITABINE
     Dosage: 1610 MG; 1000 MG/M2 ADMINISTERED ON DAY 1 AND 8 OF A 21-DAY CYCLE
     Route: 041
     Dates: start: 20220707, end: 20220707
  18. GEMCITABINE [Suspect]
     Active Substance: GEMCITABINE
     Dosage: 1660 MG: 1000 MG/M2 ADMINISTERED ON DAY 1 AND 8 OF A 21-DAY CYCLE
     Route: 041
     Dates: start: 20220721, end: 20220721
  19. GEMCITABINE [Suspect]
     Active Substance: GEMCITABINE
     Dosage: 1328 MG; 800 MG/M2 ADMINISTERED ON DAY 1 AND 8 OF A 21-DAY CYCLE
     Route: 041
     Dates: start: 20220808, end: 20220816
  20. GEMCITABINE [Suspect]
     Active Substance: GEMCITABINE
     Dosage: 1352 MG; 800 MG/M2 ADMINISTERED ON DAY 1 AND 8 OF A 21-DAY CYCLE
     Route: 041
     Dates: start: 20220830, end: 20220830
  21. GEMCITABINE [Suspect]
     Active Substance: GEMCITABINE
     Dosage: 1336 MG; 800 MG/M2 ADMINISTERED ON DAY 1 AND 8 OF A 21-DAY CYCLE
     Route: 041
     Dates: start: 20220906, end: 20220906
  22. GEMCITABINE [Suspect]
     Active Substance: GEMCITABINE
     Dosage: 1352 MG: 800 MG/M2 ADMINISTERED ON DAY 1 AND 8 OF A 21-DAY CYCLE
     Route: 041
     Dates: start: 20220928, end: 20220928
  23. GEMCITABINE [Suspect]
     Active Substance: GEMCITABINE
     Dosage: 1344 MG: 800 MG/M2
     Route: 041
     Dates: start: 20221019, end: 20221019
  24. PANTOPRAZOLE SODIUM [Concomitant]
     Active Substance: PANTOPRAZOLE SODIUM
     Indication: Abdominal discomfort
     Dosage: 40 MG, ONCE
     Route: 042
     Dates: start: 20220630, end: 20220630
  25. MAGNESIUM ISOGLYCYRRHIZINATE [Concomitant]
     Active Substance: MAGNESIUM ISOGLYCYRRHIZINATE
     Indication: Liver function test abnormal
     Dosage: 100 MG, ONCE
     Route: 042
     Dates: start: 20220630, end: 20220630
  26. MAGNESIUM ISOGLYCYRRHIZINATE [Concomitant]
     Active Substance: MAGNESIUM ISOGLYCYRRHIZINATE
     Dosage: 100 MG, ONCE
     Route: 042
     Dates: start: 20220707, end: 20220707
  27. MAGNESIUM ISOGLYCYRRHIZINATE [Concomitant]
     Active Substance: MAGNESIUM ISOGLYCYRRHIZINATE
     Dosage: 100 MG, ONCE
     Route: 042
     Dates: start: 20220721, end: 20220721
  28. MAGNESIUM ISOGLYCYRRHIZINATE [Concomitant]
     Active Substance: MAGNESIUM ISOGLYCYRRHIZINATE
     Dosage: 100 MG, ONCE
     Route: 042
     Dates: start: 20220728, end: 20220728
  29. ASCORBIC ACID [Concomitant]
     Active Substance: ASCORBIC ACID
     Indication: Vitamin supplementation
     Dosage: 3 G, ONCE
     Route: 042
     Dates: start: 20220630, end: 20220630
  30. ASCORBIC ACID [Concomitant]
     Active Substance: ASCORBIC ACID
     Dosage: 3 G, ONCE
     Route: 042
     Dates: start: 20220707, end: 20220707
  31. VITAMIN B6 [Concomitant]
     Active Substance: PYRIDOXINE HYDROCHLORIDE
     Indication: Prophylaxis of nausea and vomiting
     Dosage: 300 MG, ONCE
     Route: 042
     Dates: start: 20220630, end: 20220630
  32. VITAMIN B6 [Concomitant]
     Active Substance: PYRIDOXINE HYDROCHLORIDE
     Dosage: 300 MG, ONCE
     Route: 042
     Dates: start: 20220707, end: 20220707
  33. ESOMEPRAZOLE SODIUM [Concomitant]
     Active Substance: ESOMEPRAZOLE SODIUM
     Indication: Prophylaxis of nausea and vomiting
     Dosage: 40 MG, ONCE
     Route: 042
     Dates: start: 20220707, end: 20220707
  34. ESOMEPRAZOLE SODIUM [Concomitant]
     Active Substance: ESOMEPRAZOLE SODIUM
     Dosage: 40 MG, ONCE
     Route: 042
     Dates: start: 20220721, end: 20220721
  35. TROPISETRON HYDROCHLORIDE [Concomitant]
     Active Substance: TROPISETRON HYDROCHLORIDE
     Indication: Prophylaxis of nausea and vomiting
     Dosage: 5 MG, ONCE
     Route: 042
     Dates: start: 20220707, end: 20220707
  36. TROPISETRON HYDROCHLORIDE [Concomitant]
     Active Substance: TROPISETRON HYDROCHLORIDE
     Dosage: 5 MG, ONCE
     Route: 042
     Dates: start: 20220721, end: 20220721
  37. LIDOCAINE HYDROCHLORIDE [Concomitant]
     Active Substance: LIDOCAINE HYDROCHLORIDE
     Indication: Local anaesthesia
     Dosage: 10 ML, ONCE
     Route: 042
     Dates: start: 20220707, end: 20220707
  38. POVIDONE-IODINE [Concomitant]
     Active Substance: POVIDONE-IODINE
     Indication: Catheter management
     Dosage: 110 ML, ONCE
     Route: 042
     Dates: start: 20220721, end: 20220721
  39. LORATADINE [Concomitant]
     Active Substance: LORATADINE
     Indication: Rash
     Dosage: 10 MG, SINGLE
     Route: 048
     Dates: start: 20220706, end: 20220706

REACTIONS (1)
  - Alanine aminotransferase increased [Recovered/Resolved]

NARRATIVE: CASE EVENT DATE: 20220727
